FAERS Safety Report 12743924 (Version 1)
Quarter: 2016Q3

REPORT INFORMATION
  Report Type: Spontaneous
  Country: US (occurrence: US)
  Receive Date: 20160914
  Receipt Date: 20160914
  Transmission Date: 20161109
  Serious: Yes (Hospitalization)
  Sender: FDA-Public Use
  Company Number: US-ELI_LILLY_AND_COMPANY-US201609001483

PATIENT
  Age: 78 Year
  Sex: Female

DRUGS (2)
  1. LEVEMIR [Concomitant]
     Active Substance: INSULIN DETEMIR
  2. HUMALOG [Suspect]
     Active Substance: INSULIN LISPRO
     Indication: TYPE 2 DIABETES MELLITUS
     Dosage: 15 U, BID
     Route: 065
     Dates: start: 2015, end: 20160815

REACTIONS (10)
  - Head injury [Recovering/Resolving]
  - Contusion [Recovering/Resolving]
  - Traumatic haemorrhage [Recovering/Resolving]
  - Amnesia [Recovering/Resolving]
  - Blood glucose decreased [Recovering/Resolving]
  - Cervical vertebral fracture [Recovering/Resolving]
  - Back disorder [Recovering/Resolving]
  - Cardiac valve disease [Recovering/Resolving]
  - Fall [Recovering/Resolving]
  - Blood glucose abnormal [Recovering/Resolving]

NARRATIVE: CASE EVENT DATE: 20160729
